FAERS Safety Report 25030134 (Version 4)
Quarter: 2025Q2

REPORT INFORMATION
  Report Type: Spontaneous
  Country: US (occurrence: US)
  Receive Date: 20250303
  Receipt Date: 20250409
  Transmission Date: 20250717
  Serious: Yes (Other)
  Sender: SANDOZ
  Company Number: US-SANDOZ-SDZ2025US012264

PATIENT
  Age: 52 Year

DRUGS (1)
  1. RECLAST [Suspect]
     Active Substance: ZOLEDRONIC ACID
     Indication: Product used for unknown indication
     Route: 065

REACTIONS (11)
  - Depression [Unknown]
  - Fluid retention [Unknown]
  - Peripheral swelling [Unknown]
  - Feeling hot [Unknown]
  - Paraesthesia [Unknown]
  - Flushing [Unknown]
  - Vision blurred [Unknown]
  - Insomnia [Unknown]
  - Hyperhidrosis [Unknown]
  - Nausea [Unknown]
  - Dizziness [Unknown]
